FAERS Safety Report 8787187 (Version 2)
Quarter: 2012Q4

REPORT INFORMATION
  Report Type: 
  Country: AU (occurrence: AU)
  Receive Date: 20120914
  Receipt Date: 20120930
  Transmission Date: 20130627
  Serious: Yes (Death, Other)
  Sender: FDA-Public Use
  Company Number: AU-ELI_LILLY_AND_COMPANY-AU201209002007

PATIENT
  Age: 83 Year
  Sex: Female

DRUGS (12)
  1. CYMBALTA [Suspect]
     Indication: DEPRESSION
     Dosage: 30 mg, qd
     Dates: start: 20120725
  2. CYMBALTA [Suspect]
     Dosage: 60 mg, qd
     Dates: start: 20120809
  3. ZYPREXA [Concomitant]
     Dosage: 2.5 mg, bid
  4. ASTRIX [Concomitant]
     Dosage: 100 mg, daily
  5. CALTRATE [Concomitant]
     Dosage: 600 mg, daily
  6. CARVEDILOL [Concomitant]
     Dosage: 12.5 mg, daily
     Route: 048
  7. DUROGESIC [Concomitant]
     Dosage: 25 ug, every hour
  8. OSTELIN [Concomitant]
     Dosage: 25 ug, unknown
  9. OVESTIN [Concomitant]
     Dosage: UNK UNK, unknown
  10. PERINDO COMBI [Concomitant]
     Dosage: 2 mg, qd
  11. SLOW-K [Concomitant]
     Dosage: 600 mg, unknown
  12. SPIRONOLACTONE [Concomitant]
     Dosage: 25 mg, qd
     Route: 048

REACTIONS (5)
  - Hypotension [Fatal]
  - Hyponatraemia [Not Recovered/Not Resolved]
  - Fall [Unknown]
  - Haemorrhage [Unknown]
  - Contusion [Unknown]
